FAERS Safety Report 21171364 (Version 1)
Quarter: 2022Q3

REPORT INFORMATION
  Report Type: Spontaneous
  Country: US (occurrence: US)
  Receive Date: 20220804
  Receipt Date: 20220804
  Transmission Date: 20221026
  Serious: No
  Sender: FDA-Public Use
  Company Number: US-BRISTOL-MYERS SQUIBB COMPANY-2022-085054

PATIENT
  Age: 78 Year
  Sex: Male

DRUGS (1)
  1. REVLIMID [Suspect]
     Active Substance: LENALIDOMIDE
     Indication: Product used for unknown indication
     Route: 048
     Dates: start: 20220601

REACTIONS (4)
  - Skin exfoliation [Unknown]
  - Decreased appetite [Unknown]
  - Dysphagia [Unknown]
  - Odynophagia [Unknown]

NARRATIVE: CASE EVENT DATE: 20220803
